FAERS Safety Report 19425071 (Version 1)
Quarter: 2021Q2

REPORT INFORMATION
  Report Type: Spontaneous
  Country: FR (occurrence: FR)
  Receive Date: 20210616
  Receipt Date: 20210616
  Transmission Date: 20210717
  Serious: Yes (Congenital Anomaly, Other)
  Sender: FDA-Public Use
  Company Number: FR-ABBVIE-15P-056-1412124-00

PATIENT
  Sex: Male

DRUGS (2)
  1. TEGRETOL [Suspect]
     Active Substance: CARBAMAZEPINE
     Indication: MATERNAL EXPOSURE TIMING UNSPECIFIED
     Route: 064
  2. DEPAKINE [Suspect]
     Active Substance: VALPROATE SODIUM
     Indication: MATERNAL EXPOSURE TIMING UNSPECIFIED
     Route: 064

REACTIONS (14)
  - Hypospadias [Unknown]
  - Hydrocele female [Unknown]
  - Foetal exposure during pregnancy [Unknown]
  - Septum pellucidum agenesis [Unknown]
  - Deafness [Unknown]
  - Autism spectrum disorder [Not Recovered/Not Resolved]
  - Encopresis [Unknown]
  - Speech disorder developmental [Unknown]
  - Psychomotor skills impaired [Unknown]
  - Disturbance in attention [Unknown]
  - Eating disorder [Unknown]
  - Haemangioma [Unknown]
  - Fine motor skill dysfunction [Unknown]
  - Enuresis [Unknown]

NARRATIVE: CASE EVENT DATE: 20060309
